FAERS Safety Report 4525846-0 (Version None)
Quarter: 2004Q4

REPORT INFORMATION
  Report Type: 
  Country: None (occurrence: None)
  Receive Date: 20041213
  Receipt Date: 20020516
  Transmission Date: 20050328
  Serious: Yes (Death, Hospitalization, Disabling, Other)
  Sender: FDA-Public Use
  Company Number: US-MERCK-0205USA02109

PATIENT
  Age: 53 Year
  Sex: Male
  Weight: 161 kg

DRUGS (15)
  1. VIOXX [Suspect]
     Indication: ARTHRITIS
     Route: 048
     Dates: start: 20000201, end: 20010501
  2. ZESTRIL [Concomitant]
     Indication: HYPERTENSION
     Route: 065
  3. LASIX [Concomitant]
     Route: 065
     Dates: start: 20000101, end: 20020101
  4. LITHIUM CARBONATE [Concomitant]
     Indication: CLUSTER HEADACHE
     Route: 065
  5. PEPCID [Concomitant]
     Route: 048
  6. IBUPROFEN [Concomitant]
     Indication: PAIN
     Route: 065
  7. NEURONTIN [Concomitant]
     Route: 065
  8. PAXIL [Concomitant]
     Route: 065
  9. POTASSIUM (UNSPECIFIED) [Concomitant]
     Route: 065
  10. ATROVENT [Concomitant]
     Route: 065
  11. ALLOPURINOL [Concomitant]
     Route: 065
  12. KEFLEX [Concomitant]
     Route: 065
  13. ZOFRAN [Concomitant]
     Route: 065
  14. REGLAN [Concomitant]
     Route: 065
  15. PREDNISONE [Concomitant]
     Route: 065

REACTIONS (33)
  - ANAEMIA [None]
  - BENIGN COLONIC POLYP [None]
  - CANCER PAIN [None]
  - CARDIAC FAILURE CONGESTIVE [None]
  - CARDIO-RESPIRATORY ARREST [None]
  - CHRONIC OBSTRUCTIVE AIRWAYS DISEASE [None]
  - DEPRESSION [None]
  - DIABETES MELLITUS [None]
  - DIVERTICULUM [None]
  - DYSPNOEA EXERTIONAL [None]
  - FACIAL PALSY [None]
  - FALL [None]
  - FLANK PAIN [None]
  - FLUID RETENTION [None]
  - HAEMORRHOIDS [None]
  - HEMIPARESIS [None]
  - INJURY [None]
  - INSOMNIA [None]
  - MYOCARDIAL INFARCTION [None]
  - NAUSEA [None]
  - NON-HODGKIN'S LYMPHOMA [None]
  - OEDEMA PERIPHERAL [None]
  - OESOPHAGITIS HAEMORRHAGIC [None]
  - PATHOLOGICAL FRACTURE [None]
  - PNEUMONIA ASPIRATION [None]
  - PULMONARY HYPERTENSION [None]
  - RECTAL HAEMORRHAGE [None]
  - RECTAL POLYP [None]
  - SEPSIS [None]
  - SEPTIC SHOCK [None]
  - SINUSITIS [None]
  - STOMATITIS [None]
  - VENTRICULAR HYPERTROPHY [None]
